FAERS Safety Report 6538521-8 (Version None)
Quarter: 2010Q1

REPORT INFORMATION
  Report Type: 
  Country: None (occurrence: None)
  Receive Date: 20100111
  Receipt Date: 20091027
  Transmission Date: 20100710
  Serious: Yes (Hospitalization, Congenital Anomaly)
  Sender: FDA-Public Use
  Company Number: 8054006

PATIENT
  Sex: Female
  Weight: 1.4 kg

DRUGS (7)
  1. BETAMETHASONE [Suspect]
     Indication: MATERNAL THERAPY TO ENHANCE FOETAL LUNG MATURITY
     Dosage: (12 MG, TWO 12 MG TRANSPLACENTAL)
     Route: 064
  2. PREDNISOLONE [Suspect]
     Indication: MICROSCOPIC POLYANGIITIS
     Dosage: (60 MG, DOSE FREQ.: DAILY TRANSPLACENTAL), (10 MG, MAINTENANCE DOSE DOSE FREQ.: DAILY ORAL)
  3. CYCLOPHOSPHAMIDE [Suspect]
     Indication: MICROSCOPIC POLYANGIITIS
     Dosage: (1 G, DOSE FREQ.: DAILY TRANSPLACENTAL) (1 G, TWO 1 G PULSES DOSE FREQ.: DAILY INTRAVENOUS))
     Route: 064
  4. CYCLOPHOSPHAMIDE [Suspect]
     Indication: MICROSCOPIC POLYANGIITIS
     Dosage: (1 G, DOSE FREQ.: DAILY TRANSPLACENTAL) (1 G, TWO 1 G PULSES DOSE FREQ.: DAILY INTRAVENOUS))
     Route: 064
  5. METHYLPREDNISOLONE [Suspect]
     Indication: MICROSCOPIC POLYANGIITIS
     Dosage: (1 G, DOSE FREQ.: DAILY TRANSPLACENTAL)
     Route: 064
  6. TRIMETHOPRIM + SULFAMETHOXAZOLE [Suspect]
     Indication: PROPHYLAXIS
     Dosage: (TRANSPLACENTAL)
     Route: 064
  7. INSULIN [Concomitant]

REACTIONS (4)
  - MATERNAL DRUGS AFFECTING FOETUS [None]
  - PREMATURE BABY [None]
  - SOLITARY KIDNEY [None]
  - VENTOUSE EXTRACTION [None]
